FAERS Safety Report 11787846 (Version 4)
Quarter: 2019Q2

REPORT INFORMATION
  Report Type: Spontaneous
  Country: JP (occurrence: JP)
  Receive Date: 20151130
  Receipt Date: 20190621
  Transmission Date: 20190711
  Serious: Yes (Hospitalization, Other)
  Sender: FDA-Public Use
  Company Number: JP-BRISTOL-MYERS SQUIBB COMPANY-BMS-2015-083138

PATIENT
  Age: 56 Year
  Sex: Female
  Weight: 66 kg

DRUGS (21)
  1. HORIZON [Concomitant]
     Active Substance: DIAZEPAM
     Indication: ECHOCARDIOGRAM
     Dosage: 10 MILLIGRAM, QD
     Route: 065
     Dates: start: 20140412, end: 20140412
  2. DIPRIVAN [Concomitant]
     Active Substance: PROPOFOL
     Indication: CARDIAC ABLATION
     Dosage: 3 DF, UNK
     Route: 065
     Dates: start: 20140414, end: 20140414
  3. NOVO PROTAMINE SULFATE [Concomitant]
     Indication: CARDIAC ABLATION
     Dosage: UNK
     Route: 065
     Dates: start: 20140414, end: 20140414
  4. PRADAXA [Suspect]
     Active Substance: DABIGATRAN ETEXILATE MESYLATE
     Indication: ATRIAL FIBRILLATION
     Dosage: 150 MILLIGRAM, BID
     Route: 048
     Dates: start: 20140313
  5. MAINTATE [Concomitant]
     Active Substance: BISOPROLOL FUMARATE
     Indication: ATRIAL FIBRILLATION
     Dosage: 2.5 MG, QD
     Route: 048
     Dates: start: 20140313, end: 20140313
  6. PRAZAXA [Concomitant]
     Active Substance: DABIGATRAN ETEXILATE MESYLATE
     Indication: ATRIAL FIBRILLATION
     Dosage: 150 MG, BID
     Route: 048
     Dates: start: 20140313, end: 20140313
  7. CEFCAPENE PIVOXIL HYDROCHLORIDE [Concomitant]
     Active Substance: CEFCAPENE PIVOXIL HYDROCHLORIDE
     Indication: INFECTION PROPHYLAXIS
     Dosage: 100 MG, TID
     Route: 048
     Dates: start: 20140414, end: 20140414
  8. HEPARIN CALCIUM [Concomitant]
     Active Substance: HEPARIN CALCIUM
     Indication: ATRIAL FIBRILLATION
     Dosage: 5000 IU, QD
     Route: 058
     Dates: start: 20140414, end: 20140414
  9. HEPARIN CALCIUM [Concomitant]
     Active Substance: HEPARIN CALCIUM
     Indication: PRODUCT USED FOR UNKNOWN INDICATION
     Dosage: UNK
     Route: 058
     Dates: start: 20140501, end: 20140517
  10. XYLOCAINE                          /00033402/ [Concomitant]
     Active Substance: LIDOCAINE HYDROCHLORIDE
     Indication: CARDIAC ABLATION
     Dosage: 3 DF, QD
     Route: 065
     Dates: start: 20140414, end: 20140414
  11. BISOPROLOL FUMARATE. [Suspect]
     Active Substance: BISOPROLOL FUMARATE
     Indication: ATRIAL FIBRILLATION
     Dosage: 2.5 MG, QD
     Route: 048
     Dates: start: 20140314, end: 20140414
  12. ELIQUIS [Suspect]
     Active Substance: APIXABAN
     Indication: CEREBROVASCULAR ACCIDENT PROPHYLAXIS
     Dosage: 5 MG, BID
     Route: 048
     Dates: start: 20140314, end: 20140414
  13. PRAZAXA [Concomitant]
     Active Substance: DABIGATRAN ETEXILATE MESYLATE
     Indication: PRODUCT USED FOR UNKNOWN INDICATION
     Dosage: 150 MG, BID
     Route: 048
     Dates: start: 20140412, end: 20140501
  14. NEXIUM [Concomitant]
     Active Substance: ESOMEPRAZOLE MAGNESIUM
     Indication: GASTROOESOPHAGEAL REFLUX DISEASE
     Dosage: 20 MG, QD
     Route: 048
     Dates: start: 20140415, end: 20140501
  15. PROTERNOL-L [Concomitant]
     Indication: CARDIAC ABLATION
     Dosage: 0.002 MILLIGRAM, QD
     Route: 042
     Dates: start: 20140414, end: 20140414
  16. CALONAL [Concomitant]
     Active Substance: ACETAMINOPHEN
     Indication: PROCEDURAL PAIN
     Dosage: 400 MG, QD
     Route: 048
     Dates: start: 20140414, end: 20140414
  17. IOPAMIRON [Concomitant]
     Active Substance: IOPAMIDOL
     Indication: ANGIOGRAM
     Dosage: 240 MILLILITER, QD
     Route: 065
     Dates: start: 20140412, end: 20140412
  18. SOSEGON                            /00052101/ [Concomitant]
     Active Substance: PENTAZOCINE
     Indication: CARDIAC ABLATION
     Dosage: 7.5 MG, BID
     Route: 042
     Dates: start: 20140414, end: 20140414
  19. BISOPROLOL FUMARATE. [Suspect]
     Active Substance: BISOPROLOL FUMARATE
     Indication: ATRIAL TACHYCARDIA
     Route: 065
  20. PRADAXA [Suspect]
     Active Substance: DABIGATRAN ETEXILATE MESYLATE
     Indication: PRODUCT USED FOR UNKNOWN INDICATION
     Dosage: 150 MILLIGRAM, BID
     Route: 048
     Dates: start: 20140412, end: 20140501
  21. NOVO HEPARIN [Concomitant]
     Active Substance: HEPARIN SODIUM
     Indication: CARDIAC ABLATION
     Dosage: 2 DF, UNK
     Route: 065
     Dates: start: 20140414, end: 20140414

REACTIONS (2)
  - Drug-induced liver injury [Recovering/Resolving]
  - High frequency ablation [Unknown]

NARRATIVE: CASE EVENT DATE: 20140412
